FAERS Safety Report 7002360-4 (Version None)
Quarter: 2010Q3

REPORT INFORMATION
  Report Type: 
  Country: None (occurrence: None)
  Receive Date: 20100920
  Receipt Date: 20100527
  Transmission Date: 20110219
  Serious: Yes (Hospitalization)
  Sender: FDA-Public Use
  Company Number: US-ASTRAZENECA-2009SE17113

PATIENT
  Age: 486 Month
  Sex: Male
  Weight: 123.4 kg

DRUGS (9)
  1. SEROQUEL [Suspect]
     Indication: PARANOIA
     Dosage: 200 MG ONE HALF TABLET AT BEDTIME
     Route: 048
     Dates: start: 20060417
  2. SEROQUEL [Suspect]
     Indication: SLEEP DISORDER
     Dosage: 200 MG ONE HALF TABLET AT BEDTIME
     Route: 048
     Dates: start: 20060417
  3. SEROQUEL [Suspect]
     Indication: ANXIETY
     Dosage: 200 MG ONE HALF TABLET AT BEDTIME
     Route: 048
     Dates: start: 20060417
  4. CLONAZEPAM [Concomitant]
     Indication: BRUXISM
     Route: 048
     Dates: start: 20070101
  5. CLONAZEPAM [Concomitant]
     Indication: NIGHTMARE
     Route: 048
     Dates: start: 20070101
  6. CLONAZEPAM [Concomitant]
     Indication: RESTLESS LEGS SYNDROME
     Route: 048
     Dates: start: 20070101
  7. PAROXETINE HCL [Concomitant]
     Indication: POST-TRAUMATIC STRESS DISORDER
     Route: 048
     Dates: start: 20070101
  8. PAROXETINE HCL [Concomitant]
     Indication: DEPRESSION
     Route: 048
     Dates: start: 20070101
  9. LISINOPRIL [Concomitant]
     Indication: BLOOD PRESSURE
     Dosage: 5 MG ONE-HALF TABLET TWICE A DAY
     Route: 048

REACTIONS (2)
  - HYPERGLYCAEMIA [None]
  - TYPE 2 DIABETES MELLITUS [None]
